FAERS Safety Report 7435235-7 (Version None)
Quarter: 2011Q2

REPORT INFORMATION
  Report Type: 
  Country: None (occurrence: None)
  Receive Date: 20110425
  Receipt Date: 20110418
  Transmission Date: 20111010
  Serious: Yes (Life-Threatening, Other)
  Sender: FDA-Public Use
  Company Number: RU-ASTRAZENECA-2011SE21657

PATIENT
  Age: 66 Year
  Sex: Female
  Weight: 100 kg

DRUGS (15)
  1. CRESTOR [Suspect]
     Indication: DIABETES MELLITUS
     Route: 048
     Dates: start: 20110201, end: 20110405
  2. THERAFLU [Interacting]
     Indication: NASOPHARYNGITIS
     Route: 048
     Dates: start: 20110201, end: 20110301
  3. LAMISIL [Interacting]
     Indication: ILL-DEFINED DISORDER
     Route: 003
     Dates: start: 20110201, end: 20110405
  4. SIOFOR [Concomitant]
     Indication: TYPE 2 DIABETES MELLITUS
     Route: 048
  5. ACETAMINOPHEN [Interacting]
     Indication: INFLUENZA
     Route: 048
     Dates: start: 20110201, end: 20110301
  6. CRESTOR [Suspect]
     Indication: HYPERCHOLESTEROLAEMIA
     Route: 048
     Dates: start: 20110201, end: 20110405
  7. CRESTOR [Suspect]
     Indication: ARTERIOSCLEROSIS
     Route: 048
     Dates: start: 20110201, end: 20110405
  8. ACETAMINOPHEN [Interacting]
     Indication: PYREXIA
     Route: 048
     Dates: start: 20110201, end: 20110301
  9. ANTIVIRAL TREATMENT [Interacting]
     Indication: INFLUENZA
     Dates: start: 20110301, end: 20110301
  10. CRESTOR [Suspect]
     Indication: DYSLIPIDAEMIA
     Route: 048
     Dates: start: 20110201, end: 20110405
  11. COLDREX [Interacting]
     Indication: NASOPHARYNGITIS
     Route: 048
     Dates: start: 20110201, end: 20110301
  12. PRESTARIUM [Concomitant]
     Indication: HYPERTENSION
     Route: 048
  13. THERAFLU [Interacting]
     Indication: PYREXIA
     Route: 048
     Dates: start: 20110201, end: 20110301
  14. ARIFON [Concomitant]
     Indication: HYPERTENSION
     Dosage: 2.5 MG, EVERY DAY, 2-3 TIMES A WEEK
     Route: 048
  15. ANTI-COUGH TREATMENT [Concomitant]
     Dates: start: 20110301, end: 20110301

REACTIONS (18)
  - BLOOD CREATINE PHOSPHOKINASE INCREASED [None]
  - NASOPHARYNGITIS [None]
  - NAUSEA [None]
  - DRUG INTERACTION [None]
  - BLOOD CHOLESTEROL INCREASED [None]
  - FALL [None]
  - VOMITING [None]
  - FATIGUE [None]
  - APATHY [None]
  - RENAL PAIN [None]
  - BLOOD GLUCOSE INCREASED [None]
  - TEARFULNESS [None]
  - DECREASED APPETITE [None]
  - MYALGIA [None]
  - BLOOD TRIGLYCERIDES INCREASED [None]
  - WEIGHT DECREASED [None]
  - BODY TEMPERATURE INCREASED [None]
  - FUNGAL SKIN INFECTION [None]
